FAERS Safety Report 9790182 (Version 1)
Quarter: 2013Q4

REPORT INFORMATION
  Report Type: Spontaneous
  Country: PT (occurrence: PT)
  Receive Date: 20131231
  Receipt Date: 20131231
  Transmission Date: 20140711
  Serious: Yes (Death)
  Sender: FDA-Public Use
  Company Number: PT-MYLANLABS-2013S1028756

PATIENT
  Age: 32 Year
  Sex: Male

DRUGS (11)
  1. HALOPERIDOL [Suspect]
     Indication: INTENTIONAL OVERDOSE
     Route: 065
  2. OLANZAPINE [Suspect]
     Indication: INTENTIONAL OVERDOSE
     Route: 065
  3. QUETIAPINE [Suspect]
     Indication: INTENTIONAL OVERDOSE
     Route: 065
  4. FLUOXETINE [Suspect]
     Indication: INTENTIONAL OVERDOSE
     Route: 065
  5. PAROXETINE [Suspect]
     Indication: INTENTIONAL OVERDOSE
     Route: 065
  6. BROMAZEPAM [Suspect]
     Indication: INTENTIONAL OVERDOSE
     Route: 065
  7. LORAZEPAM [Suspect]
     Indication: INTENTIONAL OVERDOSE
     Route: 065
  8. ZOLPIDEM [Concomitant]
     Route: 065
  9. DIAZEPAM [Concomitant]
     Route: 065
  10. NORDAZEPAM [Concomitant]
     Route: 065
  11. RISPERIDONE [Concomitant]
     Route: 065

REACTIONS (3)
  - Intentional overdose [Fatal]
  - Toxicity to various agents [Fatal]
  - Completed suicide [Fatal]
